FAERS Safety Report 14137718 (Version 2)
Quarter: 2017Q4

REPORT INFORMATION
  Report Type: Spontaneous
  Country: SK (occurrence: SK)
  Receive Date: 20171027
  Receipt Date: 20171108
  Transmission Date: 20180321
  Serious: Yes (Death)
  Sender: FDA-Public Use
  Company Number: SK-ABBVIE-17P-260-2141696-00

PATIENT

DRUGS (1)
  1. LEVODOPA/CARBIDOPA [Suspect]
     Active Substance: CARBIDOPA\LEVODOPA
     Indication: PARKINSON^S DISEASE
     Route: 050

REACTIONS (8)
  - Stoma site irritation [Unknown]
  - Intestinal perforation [Fatal]
  - Peritonitis [Fatal]
  - Stoma site hypergranulation [Unknown]
  - Stoma site inflammation [Unknown]
  - Pneumonia aspiration [Fatal]
  - Device dislocation [Unknown]
  - Device occlusion [Unknown]
